FAERS Safety Report 14973319 (Version 3)
Quarter: 2018Q3

REPORT INFORMATION
  Report Type: Spontaneous
  Country: GB (occurrence: GB)
  Receive Date: 20180605
  Receipt Date: 20180717
  Transmission Date: 20181010
  Serious: Yes (Death, Other)
  Sender: FDA-Public Use
  Company Number: GB-ABBVIE-18K-167-2376875-00

PATIENT
  Age: 70 Year
  Sex: Female
  Weight: 62.6 kg

DRUGS (4)
  1. BEVACIZUMAB. [Concomitant]
     Active Substance: BEVACIZUMAB
     Indication: GLIOBLASTOMA
     Route: 042
     Dates: start: 20180316, end: 20180417
  2. DEPATUXIZUMAB [Suspect]
     Active Substance: DEPATUXIZUMAB
     Indication: GLIOBLASTOMA
     Route: 042
     Dates: start: 20180219, end: 20180417
  3. TEMOZOLOMIDE. [Suspect]
     Active Substance: TEMOZOLOMIDE
     Indication: GLIOBLASTOMA
     Route: 048
     Dates: start: 20180130, end: 20180327
  4. MAVIRET [Suspect]
     Active Substance: GLECAPREVIR\PIBRENTASVIR
     Indication: PRODUCT USED FOR UNKNOWN INDICATION
     Route: 048

REACTIONS (2)
  - Thrombocytopenia [Recovered/Resolved]
  - Glioblastoma [Fatal]

NARRATIVE: CASE EVENT DATE: 2018
